FAERS Safety Report 4284616-1 (Version None)
Quarter: 2004Q1

REPORT INFORMATION
  Report Type: 
  Country: None (occurrence: None)
  Receive Date: 20040130
  Receipt Date: 20040114
  Transmission Date: 20041129
  Serious: Yes (Other)
  Sender: FDA-Public Use
  Company Number: 234809

PATIENT

DRUGS (1)
  1. NORDITROPIN PENSET (SOMATROPIN) POWDER FOR INJECTION, 8MG [Suspect]
     Indication: MULTIPLE EPIPHYSEAL DYSPLASIA
     Dosage: 35 MG/KG, WEEKLY, SUBCUTANEOUS
     Route: 058

REACTIONS (4)
  - CONDITION AGGRAVATED [None]
  - GROWTH RETARDATION [None]
  - SCOLIOSIS [None]
  - THERAPEUTIC RESPONSE DECREASED [None]
